FAERS Safety Report 4427340-4 (Version None)
Quarter: 2004Q3

REPORT INFORMATION
  Report Type: 
  Country: None (occurrence: None)
  Receive Date: 20040811
  Receipt Date: 20040727
  Transmission Date: 20050211
  Serious: Yes (Congenital Anomaly)
  Sender: FDA-Public Use
  Company Number: 2004-0007234

PATIENT
  Sex: Female

DRUGS (5)
  1. VIREAD [Suspect]
     Indication: HIV INFECTION
     Dosage: 300 MG, 1 IN 1 D, ORAL
     Route: 048
     Dates: start: 20040114
  2. COMBIVIR [Concomitant]
  3. NEVIRAPINE (NEVIRAPINE) [Concomitant]
  4. KALETRA [Concomitant]
  5. DIDANOSINE (DIDANOSINE) [Concomitant]

REACTIONS (4)
  - CEREBELLAR HYPOPLASIA [None]
  - CONGENITAL ANOMALY [None]
  - DRUG EXPOSURE DURING PREGNANCY [None]
  - OPTIC NERVE HYPOPLASIA [None]
